FAERS Safety Report 5972642-3 (Version None)
Quarter: 2008Q4

REPORT INFORMATION
  Report Type: 
  Country: None (occurrence: None)
  Receive Date: 20081126
  Receipt Date: 20081126
  Transmission Date: 20090506
  Serious: Yes (Other)
  Sender: FDA-Public Use
  Company Number: None

PATIENT
  Age: 31 Year
  Sex: Male
  Weight: 88.4514 kg

DRUGS (1)
  1. LAMISIL [Suspect]
     Dosage: 1 PILL A DAY OTHER
     Route: 050
     Dates: start: 20080901, end: 20080907

REACTIONS (3)
  - DRUG INEFFECTIVE [None]
  - PAIN [None]
  - RASH GENERALISED [None]
